FAERS Safety Report 6528502-2 (Version None)
Quarter: 2009Q4

REPORT INFORMATION
  Report Type: 
  Country: None (occurrence: None)
  Receive Date: 20091230
  Receipt Date: 20091214
  Transmission Date: 20100525
  Serious: Yes (Hospitalization)
  Sender: FDA-Public Use
  Company Number: 460835

PATIENT
  Age: 43 Year
  Sex: Male

DRUGS (4)
  1. (CALCIUM FOLINATE) [Suspect]
     Indication: COLORECTAL CANCER
     Dosage: 800 MG
     Dates: start: 20081015, end: 20090211
  2. IRINOTECAN HCL [Suspect]
     Dosage: 360 MG, INTRAVENOUS
     Route: 042
     Dates: start: 20081015, end: 20090202
  3. FLUOROURACIL [Suspect]
     Indication: COLORECTAL CANCER
     Dosage: 4.8 G, INTRAVENOUS
     Route: 042
     Dates: start: 20081015, end: 20090211
  4. AVASTIN [Suspect]
     Indication: COLORECTAL CANCER
     Dosage: 360 MG, INTRAVENOUS
     Route: 042
     Dates: start: 20081015, end: 20090211

REACTIONS (2)
  - HAEMATEMESIS [None]
  - VENOUS THROMBOSIS [None]
